FAERS Safety Report 6214290-6 (Version None)
Quarter: 2009Q2

REPORT INFORMATION
  Report Type: 
  Country: None (occurrence: None)
  Receive Date: 20090602
  Receipt Date: 20090527
  Transmission Date: 20091009
  Serious: Yes (Death)
  Sender: FDA-Public Use
  Company Number: 2009US001942

PATIENT
  Age: 50 Year

DRUGS (5)
  1. PROGRAF [Suspect]
     Indication: RENAL TRANSPLANT
     Dosage: 6 MG, UID/QD, ORAL
     Route: 048
     Dates: start: 20080201
  2. PREDNISOLONE [Concomitant]
  3. MYCOPHENOLATE MOFETIL [Concomitant]
  4. LOSARTAN POTASSIUM [Concomitant]
  5. FUROSEMIDE [Concomitant]

REACTIONS (1)
  - RESPIRATORY ARREST [None]
